FAERS Safety Report 16919292 (Version 1)
Quarter: 2019Q4

REPORT INFORMATION
  Report Type: Spontaneous
  Country: US (occurrence: US)
  Receive Date: 20191014
  Receipt Date: 20191014
  Transmission Date: 20200122
  Serious: Yes (Hospitalization)
  Sender: FDA-Public Use
  Company Number: None

PATIENT
  Age: 65 Year
  Sex: Female
  Weight: 61.6 kg

DRUGS (7)
  1. ERGOCALCIFEROL 50,000 UNIT CAP [Concomitant]
  2. JANUVIA [Suspect]
     Active Substance: SITAGLIPTIN PHOSPHATE
     Indication: TYPE 2 DIABETES MELLITUS
     Dates: start: 20190403, end: 20191013
  3. GLYBURIDE-METFORMIN 2.5 MG - 500MG TAB [Concomitant]
  4. CARVEDILOL 25 MG TABLET [Concomitant]
     Active Substance: CARVEDILOL
  5. ATORVASTATIN 80 MG TABLET [Concomitant]
  6. AMLODIPINE 10 MG TABLET [Concomitant]
     Active Substance: AMLODIPINE BESYLATE
  7. LISINOPRIL 40 MG TAB [Concomitant]

REACTIONS (1)
  - Obstructive pancreatitis [None]

NARRATIVE: CASE EVENT DATE: 20191013
